FAERS Safety Report 18371901 (Version 3)
Quarter: 2024Q2

REPORT INFORMATION
  Report Type: Spontaneous
  Country: US (occurrence: US)
  Receive Date: 20201012
  Receipt Date: 20240523
  Transmission Date: 20240715
  Serious: Yes (Other)
  Sender: FDA-Public Use
  Company Number: US-PFIZER INC-2020388218

PATIENT
  Age: 71 Year
  Sex: Female
  Weight: 61.23 kg

DRUGS (4)
  1. PREMARIN [Suspect]
     Active Substance: ESTROGENS, CONJUGATED
     Indication: Vulvovaginal dryness
     Dosage: A LARGE PEA SIZE AMOUNT, 3-4 TIMES PER WEEK
  2. PREMARIN [Suspect]
     Active Substance: ESTROGENS, CONJUGATED
     Dosage: 0.5 MG, 2X/WEEK
     Route: 067
  3. PREMARIN [Suspect]
     Active Substance: ESTROGENS, CONJUGATED
     Dosage: 0.5 G, 2X/WEEK
     Route: 067
  4. LEVOTHYROXINE [Concomitant]
     Active Substance: LEVOTHYROXINE\LEVOTHYROXINE SODIUM
     Indication: Thyroid disorder
     Dosage: 100 UG, 1X/DAY (100MCG BY MOUTH ONCE PER DAY)
     Route: 048
     Dates: start: 1985

REACTIONS (3)
  - Glaucoma [Unknown]
  - Off label use [Unknown]
  - Product use issue [Unknown]
